FAERS Safety Report 24919543 (Version 1)
Quarter: 2025Q1

REPORT INFORMATION
  Report Type: Report from Study
  Country: US (occurrence: US)
  Receive Date: 20250204
  Receipt Date: 20250204
  Transmission Date: 20250409
  Serious: No
  Sender: EXELIXIS
  Company Number: US-EXELIXIS-CABO-23071366

PATIENT
  Age: 77 Year
  Sex: Male

DRUGS (22)
  1. CABOMETYX [Suspect]
     Active Substance: CABOZANTINIB S-MALATE
     Indication: Pancreatic neuroendocrine tumour
     Dosage: 20 MG, QD
     Dates: start: 20231115
  2. CABOMETYX [Suspect]
     Active Substance: CABOZANTINIB S-MALATE
     Dosage: 20 MG, QD
  3. CABOMETYX [Suspect]
     Active Substance: CABOZANTINIB S-MALATE
     Dosage: 20 MG, QD
  4. CREON [Concomitant]
     Active Substance: PANCRELIPASE AMYLASE\PANCRELIPASE LIPASE\PANCRELIPASE PROTEASE
  5. CURCUMIN [Concomitant]
     Active Substance: CURCUMIN
  6. DIETARY SUPPLEMENT\HERBALS\INDIAN FRANKINCENSE [Concomitant]
     Active Substance: DIETARY SUPPLEMENT\HERBALS\INDIAN FRANKINCENSE
     Indication: Antiinflammatory therapy
  7. ALPHA LIPOIC ACID [Concomitant]
     Active Substance: .ALPHA.-LIPOIC ACID
  8. DOXYCYCLINE [Concomitant]
     Active Substance: DOXYCYCLINE
  9. LEVOTHYROXINE [Concomitant]
     Active Substance: LEVOTHYROXINE
  10. BERBERINE [Concomitant]
     Active Substance: BERBERINE
  11. VITAMIN C [Concomitant]
     Active Substance: ASCORBIC ACID
  12. SCUTELLARIA LATERIFLORA WHOLE [Concomitant]
     Active Substance: SCUTELLARIA LATERIFLORA WHOLE
  13. OZONE [Concomitant]
     Active Substance: OZONE
  14. VIT D + ZINC [Concomitant]
  15. MUSHROOM [Concomitant]
     Active Substance: CULTIVATED MUSHROOM
     Indication: Immune system disorder
  16. VISCUM ALBUM FRUITING TOP [Concomitant]
     Active Substance: VISCUM ALBUM FRUITING TOP
  17. MELATONIN [Concomitant]
     Active Substance: MELATONIN
  18. Cortisol Manager [Concomitant]
  19. DIETARY SUPPLEMENT\HERBALS\MILK THISTLE [Concomitant]
     Active Substance: MILK THISTLE
  20. VITAMIN B12 [Concomitant]
     Active Substance: CYANOCOBALAMIN
  21. NALTREXONE [Concomitant]
     Active Substance: NALTREXONE
  22. BOS TAURUS BILE [Concomitant]
     Active Substance: BOS TAURUS BILE

REACTIONS (14)
  - Taste disorder [Not Recovered/Not Resolved]
  - Blood pressure increased [Not Recovered/Not Resolved]
  - Platelet count decreased [Recovering/Resolving]
  - Palmar-plantar erythrodysaesthesia syndrome [Not Recovered/Not Resolved]
  - Muscle spasms [Not Recovered/Not Resolved]
  - Constipation [Recovering/Resolving]
  - Fatigue [Not Recovered/Not Resolved]
  - Decreased appetite [Not Recovered/Not Resolved]
  - Weight decreased [Not Recovered/Not Resolved]
  - Flatulence [Recovering/Resolving]
  - Abnormal dreams [Not Recovered/Not Resolved]
  - Product dose omission issue [Unknown]
  - Intentional dose omission [Unknown]
  - Off label use [Unknown]

NARRATIVE: CASE EVENT DATE: 20231220
